FAERS Safety Report 10442416 (Version 1)
Quarter: 2014Q3

REPORT INFORMATION
  Report Type: Spontaneous
  Country: US (occurrence: US)
  Receive Date: 20140909
  Receipt Date: 20140909
  Transmission Date: 20150326
  Serious: Yes (Hospitalization)
  Sender: FDA-Public Use
  Company Number: US-PFIZER INC-2014246131

PATIENT
  Sex: Female

DRUGS (2)
  1. LIPITOR [Suspect]
     Active Substance: ATORVASTATIN CALCIUM
     Dosage: UNK
  2. COQ10 [Suspect]
     Active Substance: UBIDECARENONE
     Dosage: UNK

REACTIONS (2)
  - Chromaturia [Unknown]
  - Hepatic enzyme abnormal [Unknown]
